FAERS Safety Report 5369456-4 (Version None)
Quarter: 2007Q2

REPORT INFORMATION
  Report Type: 
  Country: None (occurrence: None)
  Receive Date: 20070621
  Receipt Date: 20070610
  Transmission Date: 20071010
  Serious: Yes (Life-Threatening, Hospitalization)
  Sender: FDA-Public Use
  Company Number: 20073841

PATIENT
  Age: 40 Year
  Sex: Female

DRUGS (2)
  1. LIORESAL [Suspect]
     Indication: MUSCLE SPASTICITY
     Dosage: UNK MCG DAILY INTRATHECAL
     Route: 037
  2. COUMADIN [Concomitant]

REACTIONS (6)
  - CATHETER SITE HAEMATOMA [None]
  - HAEMATOCRIT ABNORMAL [None]
  - HAEMORRHAGE [None]
  - MENINGITIS [None]
  - MUSCULOSKELETAL STIFFNESS [None]
  - PYREXIA [None]
